FAERS Safety Report 7813979-2 (Version None)
Quarter: 2011Q4

REPORT INFORMATION
  Report Type: 
  Country: None (occurrence: None)
  Receive Date: 20111014
  Receipt Date: 20111007
  Transmission Date: 20120403
  Serious: No
  Sender: FDA-Public Use
  Company Number: CA-PFIZER INC-2011217371

PATIENT
  Sex: Female

DRUGS (12)
  1. TAMOXIFEN CITRATE [Suspect]
     Dosage: 20 MG, 1X/DAY
     Route: 048
     Dates: start: 20080101, end: 20110819
  2. NAPROXEN [Concomitant]
     Indication: INFECTION
     Dosage: 2 DF, AS NEEDED
  3. ALLOPURINOL [Concomitant]
     Indication: GOUT
     Dosage: 1 DF, 1X/DAY
  4. NAPROXEN [Concomitant]
     Dosage: UNK
  5. TRIAZIDE [Concomitant]
     Indication: FLUID RETENTION
     Dosage: 1 DF, 1X/DAY
  6. LEVODOPA [Concomitant]
     Indication: MUSCLE SPASMS
     Dosage: 2 DF, 1X/DAY
  7. TAMOXIFEN CITRATE [Suspect]
     Dosage: 20 MG, 1X/DAY
     Route: 048
     Dates: start: 20060729, end: 20080101
  8. TIMOLOL [Concomitant]
     Indication: GLAUCOMA
     Dosage: 1 GTT IN THE RIGHT EYE, 1X/DAY (MORNING)
  9. XALATAN [Suspect]
     Indication: GLAUCOMA
     Dosage: 1 GTT IN EACH EYE DAILY
     Route: 047
     Dates: start: 20010901
  10. QUININE [Concomitant]
     Indication: MUSCLE SPASMS
     Dosage: 1 DF, 1X/DAY
  11. ASPIRIN [Concomitant]
     Dosage: 81 MG, 1X/DAY IN THE MORNING
  12. MULTI-VITAMINS [Concomitant]
     Dosage: 1 DF, 1X/DAY

REACTIONS (7)
  - TREMOR [None]
  - HYPERSENSITIVITY [None]
  - ANAEMIA [None]
  - MUSCLE SPASMS [None]
  - ORAL CANDIDIASIS [None]
  - INFECTION [None]
  - BLOOD IRON INCREASED [None]
